FAERS Safety Report 6380913-4 (Version None)
Quarter: 2009Q3

REPORT INFORMATION
  Report Type: 
  Country: None (occurrence: None)
  Receive Date: 20090929
  Receipt Date: 20090923
  Transmission Date: 20100115
  Serious: Yes (Other)
  Sender: FDA-Public Use
  Company Number: B0595299A

PATIENT
  Age: 54 Year
  Sex: Female

DRUGS (1)
  1. BACTROBAN [Suspect]
     Indication: WOUND
     Route: 061

REACTIONS (7)
  - ANXIETY [None]
  - FEELING ABNORMAL [None]
  - GENITAL DISCOMFORT [None]
  - INFLAMMATION [None]
  - KERATITIS [None]
  - STOMATITIS [None]
  - VISUAL ACUITY REDUCED [None]
